FAERS Safety Report 12647192 (Version 1)
Quarter: 2016Q3

REPORT INFORMATION
  Report Type: Spontaneous
  Country: CA (occurrence: None)
  Receive Date: 20160811
  Receipt Date: 20160811
  Transmission Date: 20161109
  Serious: Yes (Disabling)
  Sender: FDA-Public Use
  Company Number: None

PATIENT
  Age: 62 Year
  Sex: Male
  Weight: 79.38 kg

DRUGS (2)
  1. TAMSULOSIN HCL CR 0.4MG [Suspect]
     Active Substance: TAMSULOSIN HYDROCHLORIDE
     Indication: PROSTATOMEGALY
     Dosage: 90 TABLET(S) IN THE MORNING TAKEN BY MOUTH
     Route: 048
     Dates: start: 20151006, end: 20160805
  2. BORON [Concomitant]
     Active Substance: BORON

REACTIONS (3)
  - Muscular weakness [None]
  - Lip infection [None]
  - Fungal infection [None]

NARRATIVE: CASE EVENT DATE: 20160725
